FAERS Safety Report 5338564-6 (Version None)
Quarter: 2007Q2

REPORT INFORMATION
  Report Type: 
  Country: None (occurrence: None)
  Receive Date: 20070530
  Receipt Date: 20070518
  Transmission Date: 20071010
  Serious: Yes (Disabling)
  Sender: FDA-Public Use
  Company Number: NL-ROCHE-496008

PATIENT
  Age: 69 Year
  Sex: Female
  Weight: 67 kg

DRUGS (2)
  1. PEG-INTERFERON ALFA 2A (RO 25-8310) [Suspect]
     Dosage: DATE OF LAST DOSE PRIOR TO SAE: 22-APR-2007
     Route: 058
     Dates: start: 20060911
  2. ADEFOVIR DIPIVOXIL KIT [Suspect]
     Route: 048
     Dates: start: 20060911

REACTIONS (1)
  - CATARACT [None]
